FAERS Safety Report 9725684 (Version 2)
Quarter: 2013Q4

REPORT INFORMATION
  Report Type: Spontaneous
  Country: JP (occurrence: JP)
  Receive Date: 20131203
  Receipt Date: 20131219
  Transmission Date: 20140711
  Serious: Yes (Death, Hospitalization, Other)
  Sender: FDA-Public Use
  Company Number: JP-ELI_LILLY_AND_COMPANY-JP201311009186

PATIENT
  Age: 61 Year
  Sex: Male

DRUGS (3)
  1. GEMZAR [Suspect]
     Indication: BLADDER CANCER
     Route: 042
  2. PACLITAXEL [Concomitant]
     Indication: BLADDER CANCER
     Route: 042
  3. CARBOPLATIN [Concomitant]
     Indication: BLADDER CANCER
     Route: 042

REACTIONS (5)
  - Death [Fatal]
  - Embolic cerebral infarction [Unknown]
  - Endocarditis noninfective [Unknown]
  - Metastasis [Unknown]
  - Thrombocytopenia [Unknown]
